FAERS Safety Report 25613689 (Version 2)
Quarter: 2025Q3

REPORT INFORMATION
  Report Type: Spontaneous
  Country: EU (occurrence: EU)
  Receive Date: 20250728
  Receipt Date: 20250731
  Transmission Date: 20251021
  Serious: Yes (Other)
  Sender: NOVARTIS
  Company Number: EU-002147023-NVSC2025RO117167

PATIENT
  Age: 65 Year
  Sex: Female

DRUGS (4)
  1. RIBOCICLIB [Suspect]
     Active Substance: RIBOCICLIB
     Indication: Breast cancer stage IV
     Dosage: 200 MG, TID, (3 TABLET PER  DAY, DAILY  FOR 21  DAYS, WITH  7 DAYS OFF)
     Route: 065
     Dates: start: 202411
  2. LETROZOLE [Concomitant]
     Active Substance: LETROZOLE
     Indication: Breast neoplasm
     Dosage: 2.5 MG, QD
     Route: 065
     Dates: start: 202411
  3. XGEVA [Concomitant]
     Active Substance: DENOSUMAB
     Indication: Product used for unknown indication
     Route: 065
     Dates: start: 202411
  4. Hepatoprotect [Concomitant]
     Indication: Product used for unknown indication
     Route: 065

REACTIONS (6)
  - Metastases to bone [Unknown]
  - Breast cancer stage IV [Unknown]
  - Malignant neoplasm progression [Unknown]
  - Neutropenia [Unknown]
  - Hepatic cytolysis [Unknown]
  - Nausea [Unknown]
